FAERS Safety Report 13050710 (Version 2)
Quarter: 2017Q2

REPORT INFORMATION
  Report Type: Spontaneous
  Country: CA (occurrence: CA)
  Receive Date: 20161221
  Receipt Date: 20170426
  Transmission Date: 20170830
  Serious: Yes (Other)
  Sender: FDA-Public Use
  Company Number: CA-PFIZER INC-2016584399

PATIENT
  Age: 32 Year
  Sex: Female

DRUGS (2)
  1. CEPHALEXIN. [Concomitant]
     Active Substance: CEPHALEXIN
     Indication: PROPHYLAXIS
     Dosage: UNK
     Route: 048
  2. METHOTREXATE SODIUM. [Suspect]
     Active Substance: METHOTREXATE SODIUM
     Indication: PLACENTA ACCRETA
     Dosage: 75 MG, SINGLE
     Route: 030

REACTIONS (6)
  - Peritonitis [Recovered/Resolved]
  - Drug ineffective for unapproved indication [Unknown]
  - Endometritis [Recovered/Resolved]
  - Bacteraemia [Recovered/Resolved]
  - Ileus [Recovered/Resolved]
  - Product use in unapproved indication [Unknown]
